FAERS Safety Report 6231140-2 (Version None)
Quarter: 2009Q2

REPORT INFORMATION
  Report Type: 
  Country: None (occurrence: None)
  Receive Date: 20090616
  Receipt Date: 20090605
  Transmission Date: 20091009
  Serious: Yes (Other)
  Sender: FDA-Public Use
  Company Number: US-BIOGENIDEC-2009BI017686

PATIENT
  Age: 42 Year
  Sex: Female
  Weight: 130 kg

DRUGS (2)
  1. AVONEX [Suspect]
     Indication: MULTIPLE SCLEROSIS
     Route: 030
     Dates: start: 20070101, end: 20080401
  2. AVONEX [Suspect]
     Route: 030
     Dates: start: 20080701, end: 20080901

REACTIONS (7)
  - BLINDNESS [None]
  - CHILLS [None]
  - CONFUSIONAL STATE [None]
  - GAIT DISTURBANCE [None]
  - INFLUENZA LIKE ILLNESS [None]
  - PYREXIA [None]
  - VOMITING [None]
